FAERS Safety Report 9424635 (Version 1)
Quarter: 2013Q3

REPORT INFORMATION
  Report Type: Report from Study
  Country: GB (occurrence: GB)
  Receive Date: 20130729
  Receipt Date: 20130729
  Transmission Date: 20140515
  Serious: Yes (Death, Hospitalization)
  Sender: FDA-Public Use
  Company Number: GB-ROCHE-734080

PATIENT
  Age: 73 Year
  Sex: Male
  Weight: 74.1 kg

DRUGS (8)
  1. BEVACIZUMAB [Suspect]
     Indication: COLORECTAL CANCER METASTATIC
     Dosage: DOSAGE FORM : INFUSION, B5008 : 100 MG, B5023 : 400 MG, FRQUENCY 21 DAYS
     Route: 042
     Dates: start: 20101011, end: 20101012
  2. CAPECITABINE [Suspect]
     Indication: COLORECTAL CANCER METASTATIC
     Dosage: DAILY FOR 14 DAYS
     Route: 048
     Dates: start: 20101012, end: 20101013
  3. RAMIPRIL [Concomitant]
     Route: 065
  4. QUININE SULFATE [Concomitant]
     Route: 065
  5. SPIRIVA [Concomitant]
     Route: 065
  6. MONTELUKAST [Concomitant]
     Route: 065
  7. SYMBICORT [Concomitant]
     Dosage: 11 PUFFS INHALATION
     Route: 065
  8. PREDNISONE [Concomitant]
     Route: 065
     Dates: start: 20101013, end: 20101018

REACTIONS (2)
  - Metastatic neoplasm [Fatal]
  - Pneumonia [Recovering/Resolving]
